FAERS Safety Report 17168044 (Version 1)
Quarter: 2019Q4

REPORT INFORMATION
  Report Type: Spontaneous
  Country: US (occurrence: US)
  Receive Date: 20191218
  Receipt Date: 20191218
  Transmission Date: 20200122
  Serious: No
  Sender: FDA-Public Use
  Company Number: US-TEVA-2019-US-1147304

PATIENT
  Sex: Female

DRUGS (1)
  1. AJOVY [Suspect]
     Active Substance: FREMANEZUMAB-VFRM
     Indication: MIGRAINE
     Route: 065

REACTIONS (6)
  - Dizziness [Unknown]
  - Headache [Unknown]
  - Hypertension [Unknown]
  - Ear discomfort [Unknown]
  - Head discomfort [Unknown]
  - Vision blurred [Unknown]
